FAERS Safety Report 4505061-7 (Version None)
Quarter: 2004Q4

REPORT INFORMATION
  Report Type: 
  Country: None (occurrence: None)
  Receive Date: 20041015
  Receipt Date: 20040806
  Transmission Date: 20050328
  Serious: Yes (Other)
  Sender: FDA-Public Use
  Company Number: 2004054070

PATIENT
  Sex: Male

DRUGS (2)
  1. NEURONTIN [Suspect]
     Indication: ILL-DEFINED DISORDER
     Dosage: 1800 MG (1 D)
     Dates: start: 20020101
  2. LEVETIRACETAM [Concomitant]

REACTIONS (6)
  - CONFUSIONAL STATE [None]
  - DYSARTHRIA [None]
  - HEPATITIS [None]
  - HYPERVIGILANCE [None]
  - SPEECH DISORDER [None]
  - UNEVALUABLE EVENT [None]
